FAERS Safety Report 4821217-8 (Version None)
Quarter: 2005Q4

REPORT INFORMATION
  Report Type: 
  Country: None (occurrence: None)
  Receive Date: 20051107
  Receipt Date: 20051017
  Transmission Date: 20060501
  Serious: Yes (Hospitalization)
  Sender: FDA-Public Use
  Company Number: US-BOEHRINGER INGELHEIM PHARMACEUTICALS, INC.-2005-BP-18481BP

PATIENT
  Age: 76 Year
  Sex: Female

DRUGS (14)
  1. SPIRIVA [Suspect]
     Indication: CARDIAC FAILURE ACUTE
     Route: 055
     Dates: start: 20050801
  2. SPIRIVA [Suspect]
     Indication: DYSPNOEA
  3. ASPIRIN [Concomitant]
     Indication: CARDIAC DISORDER
  4. NITROTAB [Concomitant]
     Indication: CARDIAC FAILURE
  5. IMDUR [Concomitant]
     Indication: CARDIAC FAILURE
  6. CLONIDINE [Concomitant]
     Indication: HYPERTENSION
  7. COREG [Concomitant]
     Indication: CARDIAC FAILURE
  8. NORVASC [Concomitant]
     Indication: HYPERTENSION
  9. DIOVAN [Concomitant]
     Indication: HYPERTENSION
  10. ALDACTONE [Concomitant]
     Indication: CARDIAC FAILURE
  11. LASIX [Concomitant]
     Indication: CARDIAC FAILURE
  12. NEXIUM [Concomitant]
     Indication: GASTROOESOPHAGEAL REFLUX DISEASE
  13. ZETIA [Concomitant]
     Indication: BLOOD CHOLESTEROL INCREASED
  14. ADVICOR [Concomitant]
     Indication: BLOOD CHOLESTEROL INCREASED

REACTIONS (1)
  - HYPERTENSION [None]
